FAERS Safety Report 4848108-0 (Version None)
Quarter: 2005Q4

REPORT INFORMATION
  Report Type: 
  Country: None (occurrence: None)
  Receive Date: 20051206
  Receipt Date: 20051128
  Transmission Date: 20060501
  Serious: Yes (Hospitalization, Other)
  Sender: FDA-Public Use
  Company Number: HQWYE735829NOV05

PATIENT
  Age: 49 Year
  Sex: Male

DRUGS (5)
  1. RAPAMUNE [Suspect]
     Indication: PROPHYLAXIS AGAINST TRANSPLANT REJECTION
     Dosage: 2 MG 1X PER 1 DAY
  2. LEVOTHYROXINE SODIUM [Concomitant]
  3. COTRIM FORTE L.U.T. (SULFAMETHOXAZOLE/TRIMETHOPRIM), [Concomitant]
  4. PREDNISONE [Suspect]
     Indication: PROPHYLAXIS AGAINST TRANSPLANT REJECTION
     Dosage: 5 MG 1X PER 1 DAY
  5. TACROLIMUS (TACROLIMUS,) [Suspect]
     Indication: PROPHYLAXIS AGAINST TRANSPLANT REJECTION
     Dosage: 3 MG TOTAL DAILY USE

REACTIONS (1)
  - KIDNEY TRANSPLANT REJECTION [None]
